FAERS Safety Report 5563300-8 (Version None)
Quarter: 2007Q4

REPORT INFORMATION
  Report Type: 
  Country: None (occurrence: None)
  Receive Date: 20071211
  Receipt Date: 20071204
  Transmission Date: 20080405
  Serious: Yes (Life-Threatening)
  Sender: FDA-Public Use
  Company Number: 2007SP010116

PATIENT
  Age: 32 Year
  Sex: Female
  Weight: 58 kg

DRUGS (25)
  1. TEMODAL [Suspect]
     Indication: GLIOBLASTOMA MULTIFORME
     Dosage: 75 MG/M2;QD;PO, 75 MG/M2;QD; PO, 150 MG/M2,QD;PO, 200 MG/M2,QD. PO, 200 MG/M2,QD;PO
     Route: 048
     Dates: start: 20061026, end: 20061107
  2. TEMODAL [Suspect]
     Indication: GLIOBLASTOMA MULTIFORME
     Dosage: 75 MG/M2;QD;PO, 75 MG/M2;QD; PO, 150 MG/M2,QD;PO, 200 MG/M2,QD. PO, 200 MG/M2,QD;PO
     Route: 048
     Dates: start: 20061110, end: 20061206
  3. TEMODAL [Suspect]
     Indication: GLIOBLASTOMA MULTIFORME
     Dosage: 75 MG/M2;QD;PO, 75 MG/M2;QD; PO, 150 MG/M2,QD;PO, 200 MG/M2,QD. PO, 200 MG/M2,QD;PO
     Route: 048
     Dates: start: 20070209, end: 20070213
  4. TEMODAL [Suspect]
     Indication: GLIOBLASTOMA MULTIFORME
     Dosage: 75 MG/M2;QD;PO, 75 MG/M2;QD; PO, 150 MG/M2,QD;PO, 200 MG/M2,QD. PO, 200 MG/M2,QD;PO
     Route: 048
     Dates: start: 20070309, end: 20070313
  5. TEMODAL [Suspect]
     Indication: GLIOBLASTOMA MULTIFORME
     Dosage: 75 MG/M2;QD;PO, 75 MG/M2;QD; PO, 150 MG/M2,QD;PO, 200 MG/M2,QD. PO, 200 MG/M2,QD;PO
     Route: 048
     Dates: start: 20070406, end: 20070410
  6. DEPAKENE [Concomitant]
  7. GASTER D [Concomitant]
  8. MAGNESIUM OXIDE [Concomitant]
  9. MAGNESIUM OXIDE [Concomitant]
  10. NAUZELIN [Concomitant]
  11. NAUZELIN [Concomitant]
  12. ZONISAMIDE [Concomitant]
  13. TAKEPRON OD [Concomitant]
  14. PREDONINE [Concomitant]
  15. GLYCEOL [Concomitant]
  16. DECADRON [Concomitant]
  17. RINDERON [Concomitant]
  18. NASEA [Concomitant]
  19. NASEA [Concomitant]
  20. NASEA [Concomitant]
  21. NASEA [Concomitant]
  22. NASEA [Concomitant]
  23. DEPAS [Concomitant]
  24. TEGRETOL [Concomitant]
  25. LIPITOR [Concomitant]

REACTIONS (7)
  - CANDIDIASIS [None]
  - DEHYDRATION [None]
  - DIARRHOEA [None]
  - ENTERITIS INFECTIOUS [None]
  - ENTEROBACTER INFECTION [None]
  - ENTEROCOCCAL INFECTION [None]
  - PLATELET COUNT DECREASED [None]
